FAERS Safety Report 18312993 (Version 1)
Quarter: 2020Q3

REPORT INFORMATION
  Report Type: Spontaneous
  Country: US (occurrence: US)
  Receive Date: 20200925
  Receipt Date: 20200925
  Transmission Date: 20201103
  Serious: Yes (Hospitalization, Other)
  Sender: FDA-Public Use
  Company Number: US-AMGEN-USASP2020152175

PATIENT
  Age: 67 Year
  Sex: Male

DRUGS (4)
  1. REPATHA [Suspect]
     Active Substance: EVOLOCUMAB
     Dosage: 140 MILLIGRAM, Q2WK
     Route: 065
     Dates: start: 20200713
  2. REPATHA [Suspect]
     Active Substance: EVOLOCUMAB
     Indication: BLOOD CHOLESTEROL INCREASED
     Dosage: 140 MILLIGRAM, Q2WK
     Route: 065
     Dates: start: 2017, end: 202001
  3. PRALUENT [Suspect]
     Active Substance: ALIROCUMAB
     Indication: BLOOD CHOLESTEROL INCREASED
     Dosage: UNK UNK, Q2WK
     Route: 065
     Dates: start: 20200206
  4. TRULICITY [Concomitant]
     Active Substance: DULAGLUTIDE
     Dosage: UNK
     Dates: start: 20200707

REACTIONS (6)
  - Feeling jittery [Recovered/Resolved]
  - Hypertension [Unknown]
  - Atrial fibrillation [Unknown]
  - Cerebrovascular accident [Unknown]
  - Anaphylactic shock [Unknown]
  - Transient ischaemic attack [Unknown]

NARRATIVE: CASE EVENT DATE: 2020
